FAERS Safety Report 5968464-X (Version None)
Quarter: 2008Q4

REPORT INFORMATION
  Report Type: 
  Country: None (occurrence: None)
  Receive Date: 20081121
  Receipt Date: 20081121
  Transmission Date: 20090506
  Serious: Yes (Life-Threatening, Hospitalization)
  Sender: FDA-Public Use
  Company Number: None

PATIENT
  Age: 55 Year
  Sex: Male
  Weight: 73.4827 kg

DRUGS (1)
  1. RILUZOLE [Suspect]
     Indication: AMYOTROPHIC LATERAL SCLEROSIS
     Dosage: 50MG BID PO
     Route: 048
     Dates: start: 20070906, end: 20070914

REACTIONS (1)
  - PULMONARY EMBOLISM [None]
